FAERS Safety Report 17673001 (Version 1)
Quarter: 2020Q2

REPORT INFORMATION
  Report Type: Spontaneous
  Country: US (occurrence: US)
  Receive Date: 20200415
  Receipt Date: 20200415
  Transmission Date: 20200713
  Serious: No
  Sender: FDA-Public Use
  Company Number: US-ALKERMES INC.-ALK-2019-005376

PATIENT
  Age: 42 Year
  Sex: Male

DRUGS (2)
  1. VIVITROL [Suspect]
     Active Substance: NALTREXONE
     Indication: DRUG DEPENDENCE
     Dosage: 380 MG, QMO
     Route: 030
     Dates: start: 20191004
  2. VIVITROL [Suspect]
     Active Substance: NALTREXONE
     Dosage: 380 MG, QMO
     Route: 030
     Dates: start: 20190812, end: 20190812

REACTIONS (4)
  - Nasopharyngitis [Recovered/Resolved]
  - Cough [Recovered/Resolved]
  - Sinus congestion [Recovered/Resolved]
  - Rhinorrhoea [Recovered/Resolved]

NARRATIVE: CASE EVENT DATE: 2019
